FAERS Safety Report 17840299 (Version 1)
Quarter: 2020Q2

REPORT INFORMATION
  Report Type: Spontaneous
  Country: US (occurrence: US)
  Receive Date: 20200529
  Receipt Date: 20200529
  Transmission Date: 20200714
  Serious: No
  Sender: FDA-Public Use
  Company Number: US-ALKERMES INC.-ALK-2020-002177

PATIENT
  Age: 47 Year
  Sex: Male

DRUGS (2)
  1. VIVITROL [Suspect]
     Active Substance: NALTREXONE
     Dosage: 380 MILLIGRAM, QMO
     Route: 030
  2. VIVITROL [Suspect]
     Active Substance: NALTREXONE
     Indication: ALCOHOLISM
     Dosage: 380 MILLIGRAM, QMO
     Route: 030
     Dates: start: 20200522

REACTIONS (4)
  - Needle issue [Unknown]
  - Injection site reaction [Recovering/Resolving]
  - Injection site pain [Recovering/Resolving]
  - Lack of injection site rotation [Unknown]

NARRATIVE: CASE EVENT DATE: 20200522
